FAERS Safety Report 4697783-2 (Version None)
Quarter: 2005Q2

REPORT INFORMATION
  Report Type: 
  Country: None (occurrence: None)
  Receive Date: 20050621
  Receipt Date: 20050621
  Transmission Date: 20051028
  Serious: Yes (Hospitalization)
  Sender: FDA-Public Use
  Company Number: None

PATIENT
  Age: 81 Year
  Sex: Male
  Weight: 74.1 kg

DRUGS (2)
  1. BUPROPION SA 100 MG [Suspect]
     Indication: DEPRESSION
     Dosage: 1 TAB BID
     Dates: start: 20040624, end: 20050119
  2. FLUOXETINE [Suspect]
     Indication: DEPRESSION
     Dosage: 2 CAPS DAILY
     Dates: start: 20010701, end: 20050119

REACTIONS (5)
  - ANOREXIA [None]
  - CONFUSIONAL STATE [None]
  - DEHYDRATION [None]
  - SEROTONIN SYNDROME [None]
  - URINARY TRACT INFECTION [None]
